FAERS Safety Report 6956987-6 (Version None)
Quarter: 2010Q3

REPORT INFORMATION
  Report Type: 
  Country: None (occurrence: None)
  Receive Date: 20100827
  Receipt Date: 20100827
  Transmission Date: 20110219
  Serious: Yes (Other)
  Sender: FDA-Public Use
  Company Number: None

PATIENT
  Sex: Female
  Weight: 48.9885 kg

DRUGS (1)
  1. BONIVA [Suspect]
     Indication: OSTEOPOROSIS
     Dosage: 150 MG MONTHLY
     Dates: start: 20090201, end: 20100101

REACTIONS (3)
  - GINGIVAL PAIN [None]
  - SENSITIVITY OF TEETH [None]
  - TOOTHACHE [None]
